FAERS Safety Report 23825711 (Version 4)
Quarter: 2025Q1

REPORT INFORMATION
  Report Type: Spontaneous
  Country: US (occurrence: US)
  Receive Date: 20240507
  Receipt Date: 20250121
  Transmission Date: 20250409
  Serious: Yes (Other)
  Sender: PFIZER
  Company Number: US-PFIZER INC-PV202400058758

PATIENT
  Age: 47 Year
  Sex: Female

DRUGS (2)
  1. IBRANCE [Suspect]
     Active Substance: PALBOCICLIB
  2. LUPRON [Concomitant]
     Active Substance: LEUPROLIDE ACETATE

REACTIONS (10)
  - Nephrolithiasis [Unknown]
  - Neoplasm progression [Unknown]
  - Diarrhoea [Unknown]
  - Intermenstrual bleeding [Recovered/Resolved]
  - Nausea [Unknown]
  - Breast pain [Unknown]
  - Constipation [Recovering/Resolving]
  - Vomiting [Unknown]
  - Illness [Unknown]
  - Product dose omission in error [Unknown]
